FAERS Safety Report 16793855 (Version 1)
Quarter: 2019Q3

REPORT INFORMATION
  Report Type: Report from Study
  Country: US (occurrence: US)
  Receive Date: 20190911
  Receipt Date: 20190911
  Transmission Date: 20191005
  Serious: Yes (Other)
  Sender: FDA-Public Use
  Company Number: US-TEVA-2019-US-1106689

PATIENT
  Sex: Female

DRUGS (1)
  1. AMBRISENTAN TEVA [Suspect]
     Active Substance: AMBRISENTAN

REACTIONS (6)
  - Dyspnoea [Recovered/Resolved]
  - Fatigue [Recovered/Resolved]
  - Asthenia [Recovered/Resolved]
  - Gait disturbance [Recovered/Resolved]
  - Nasal congestion [Recovered/Resolved]
  - Mental impairment [Recovered/Resolved]
